FAERS Safety Report 5007920-8 (Version None)
Quarter: 2006Q2

REPORT INFORMATION
  Report Type: 
  Country: None (occurrence: None)
  Receive Date: 20060518
  Receipt Date: 20060510
  Transmission Date: 20061013
  Serious: Yes (Hospitalization)
  Sender: FDA-Public Use
  Company Number: FR200605000817

PATIENT
  Age: 40 Year
  Sex: Female

DRUGS (3)
  1. ZYPREXA [Suspect]
     Indication: BIPOLAR DISORDER
     Dosage: 20  MG, DAILY (1/D)
     Dates: start: 20060217, end: 20060220
  2. TERCIAN (CYAMEMAZINE) [Concomitant]
  3. DEPAKOTE [Concomitant]

REACTIONS (5)
  - BLOOD ALKALINE PHOSPHATASE INCREASED [None]
  - BLOOD PRESSURE DECREASED [None]
  - CYTOLYTIC HEPATITIS [None]
  - HYPERTHERMIA [None]
  - PROTHROMBIN TIME SHORTENED [None]
